FAERS Safety Report 9152128 (Version 1)
Quarter: 2013Q1

REPORT INFORMATION
  Report Type: Spontaneous
  Country: US (occurrence: US)
  Receive Date: 20130308
  Receipt Date: 20130308
  Transmission Date: 20140127
  Serious: Yes (Other)
  Sender: FDA-Public Use
  Company Number: US-BAYER-2013-025883

PATIENT
  Age: 34 Year
  Sex: Female

DRUGS (3)
  1. PRAZIQUANTEL [Suspect]
  2. CORTICOSTEROIDS [Concomitant]
  3. PHENYTOIN SODIUM [Concomitant]
     Indication: HYPOAESTHESIA

REACTIONS (1)
  - Peripheral sensory neuropathy [Recovering/Resolving]
